FAERS Safety Report 20009606 (Version 1)
Quarter: 2021Q4

REPORT INFORMATION
  Report Type: Spontaneous
  Country: US (occurrence: US)
  Receive Date: 20211028
  Receipt Date: 20211028
  Transmission Date: 20220303
  Serious: No
  Sender: FDA-Public Use
  Company Number: None

PATIENT
  Age: 55 Year
  Weight: 94.5 kg

DRUGS (1)
  1. ADMELOG [Suspect]
     Active Substance: INSULIN LISPRO
     Indication: Diabetes mellitus
     Dosage: ?          OTHER STRENGTH:UNITS;QUANTITY:1 UNIT;OTHER FREQUENCY:DAILY VIA PUMP;
     Route: 058
     Dates: start: 20211025, end: 20211028

REACTIONS (3)
  - Product quality issue [None]
  - Blood glucose increased [None]
  - Blood glucose decreased [None]

NARRATIVE: CASE EVENT DATE: 20211025
